FAERS Safety Report 4465281-7 (Version None)
Quarter: 2004Q3

REPORT INFORMATION
  Report Type: 
  Country: None (occurrence: None)
  Receive Date: 20040929
  Receipt Date: 20040921
  Transmission Date: 20050211
  Serious: Yes (Death)
  Sender: FDA-Public Use
  Company Number: US-JNJFOC-20040706545

PATIENT
  Age: 12 Year
  Sex: Male
  Weight: 43.5453 kg

DRUGS (1)
  1. TYLENOL [Suspect]

REACTIONS (10)
  - ASPIRATION [None]
  - CARBOXYHAEMOGLOBIN INCREASED [None]
  - COMA [None]
  - CONGENITAL ATRIAL SEPTAL DEFECT [None]
  - DRUG LEVEL INCREASED [None]
  - DRUG SCREEN POSITIVE [None]
  - FEELING ABNORMAL [None]
  - HEAD CIRCUMFERENCE ABNORMAL [None]
  - NEPHROLITHIASIS [None]
  - TRICHOTILLOMANIA [None]
